FAERS Safety Report 17821192 (Version 1)
Quarter: 2020Q2

REPORT INFORMATION
  Report Type: Spontaneous
  Country: CA (occurrence: CA)
  Receive Date: 20200525
  Receipt Date: 20200525
  Transmission Date: 20200714
  Serious: Yes (Other)
  Sender: FDA-Public Use
  Company Number: CA-SA-2020SA130035

PATIENT
  Age: 31 Year
  Sex: Female

DRUGS (4)
  1. DOXORUBICIN [Suspect]
     Active Substance: DOXORUBICIN
     Indication: DEDIFFERENTIATED LIPOSARCOMA
  2. GEMCITABINE HYDROCHLORIDE. [Suspect]
     Active Substance: GEMCITABINE HYDROCHLORIDE
     Indication: DEDIFFERENTIATED LIPOSARCOMA
  3. REGORAFENIB. [Suspect]
     Active Substance: REGORAFENIB
     Indication: DEDIFFERENTIATED LIPOSARCOMA
     Dosage: UNK
  4. DOCETAXEL. [Suspect]
     Active Substance: DOCETAXEL
     Indication: DEDIFFERENTIATED LIPOSARCOMA
     Dosage: UNK

REACTIONS (3)
  - Malignant neoplasm progression [Unknown]
  - Product use in unapproved indication [Unknown]
  - Dedifferentiated liposarcoma [Unknown]
